FAERS Safety Report 21219116 (Version 1)
Quarter: 2022Q3

REPORT INFORMATION
  Report Type: Report from Study
  Country: KR (occurrence: KR)
  Receive Date: 20220816
  Receipt Date: 20220816
  Transmission Date: 20221027
  Serious: Yes (Life-Threatening, Hospitalization, Other)
  Sender: FDA-Public Use
  Company Number: KR-CELLTRION INC.-2022KR012646

PATIENT

DRUGS (10)
  1. HERZUMA [Suspect]
     Active Substance: TRASTUZUMAB-PKRB
     Indication: Breast cancer
     Dosage: UNK UNK, CYCLIC
     Route: 042
     Dates: start: 20220411, end: 20220411
  2. HERZUMA [Suspect]
     Active Substance: TRASTUZUMAB-PKRB
     Dosage: UNK UNK, CYCLIC
     Route: 042
     Dates: start: 20220719, end: 20220719
  3. VERZENIO [Suspect]
     Active Substance: ABEMACICLIB
     Indication: Breast cancer
     Dosage: UNK, CYCLIC
     Dates: start: 20220719, end: 20220719
  4. PANTOPRAZOLE SODIUM [Concomitant]
     Active Substance: PANTOPRAZOLE SODIUM
     Indication: Dyspepsia
     Dosage: 20 MG, QD
     Route: 048
     Dates: start: 20220411
  5. GASTIIN CR [Concomitant]
     Indication: Dyspepsia
     Dosage: 15 MG, QD
     Route: 048
     Dates: start: 20210916
  6. TRAPHEN [Concomitant]
     Indication: Cancer pain
     Dosage: 1 TAB BID
     Route: 048
     Dates: start: 20201120
  7. NAFTOPIDIL [Concomitant]
     Active Substance: NAFTOPIDIL
     Indication: Dysuria
     Dosage: 50 MG, QD
     Route: 048
     Dates: start: 20211104
  8. LYRICA [Concomitant]
     Active Substance: PREGABALIN
     Indication: Neuropathy peripheral
     Dosage: 50 MG, BID
     Route: 048
     Dates: start: 20201210
  9. KEPPRA [Concomitant]
     Active Substance: LEVETIRACETAM
     Indication: Seizure
     Dosage: 500 MG, BID
     Route: 048
     Dates: start: 20200902
  10. CHOLINE ALFOSCERATE [Concomitant]
     Active Substance: CHOLINE ALFOSCERATE
     Indication: Nervous system disorder prophylaxis
     Dosage: 400 MG, BID
     Route: 048
     Dates: start: 20201021

REACTIONS (1)
  - Gastrointestinal haemorrhage [Not Recovered/Not Resolved]

NARRATIVE: CASE EVENT DATE: 20220802
